FAERS Safety Report 9002309 (Version 1)
Quarter: 2013Q1

REPORT INFORMATION
  Report Type: Spontaneous
  Country: US (occurrence: US)
  Receive Date: 20130107
  Receipt Date: 20130107
  Transmission Date: 20140127
  Serious: Yes (Other)
  Sender: FDA-Public Use
  Company Number: US-PFIZER INC-2013002846

PATIENT
  Age: 50 Year
  Sex: Male
  Weight: 125 kg

DRUGS (18)
  1. LYRICA [Suspect]
     Indication: INTERVERTEBRAL DISC PROTRUSION
     Dosage: 150 MG, 2X/DAY
     Route: 048
     Dates: start: 2005
  2. CELEBREX [Suspect]
     Indication: INTERVERTEBRAL DISC PROTRUSION
     Dosage: 200 MG, DAILY
     Route: 048
     Dates: start: 1999
  3. CELEBREX [Suspect]
     Indication: INFLAMMATION
     Dosage: 200 MG, UNK
     Route: 048
     Dates: start: 2005
  4. LOPID [Suspect]
     Indication: BLOOD CHOLESTEROL INCREASED
     Dosage: 600 MG, DAILY
     Route: 048
  5. LOPID [Suspect]
     Indication: BLOOD TRIGLYCERIDES INCREASED
  6. FLONASE [Concomitant]
     Indication: DYSPNOEA
     Dosage: 50 UG, DAILY
  7. FLONASE [Concomitant]
     Indication: ASTHMA
  8. FLONASE [Concomitant]
     Indication: CHRONIC OBSTRUCTIVE PULMONARY DISEASE
  9. METOPROLOL [Concomitant]
     Indication: CARDIAC DISORDER
     Dosage: 25 MG, 2X/DAY
     Route: 048
  10. METOPROLOL [Concomitant]
     Indication: BLOOD PRESSURE ABNORMAL
  11. ACETYLSALICYLIC ACID [Concomitant]
     Indication: CARDIAC DISORDER
     Dosage: 300 MG, DAILY
     Route: 048
  12. TAMSULOSIN [Concomitant]
     Indication: MICTURITION DISORDER
     Dosage: 0.41 MG, DAILY
     Route: 048
  13. LISINOPRIL [Concomitant]
     Indication: CARDIAC DISORDER
     Dosage: 10 MG, DAILY
     Route: 048
  14. CITALOPRAM [Concomitant]
     Indication: DEPRESSION
     Dosage: 40 MG, DAILY
     Route: 048
  15. ZOLPIDEM [Concomitant]
     Indication: SLEEP DISORDER
     Dosage: 10 MG, DAILY
     Route: 048
  16. ADVAIR DISKUS [Concomitant]
     Indication: DYSPNOEA
     Dosage: 250/50 UG,2X/DAY
  17. ADVAIR DISKUS [Concomitant]
     Indication: ASTHMA
  18. ADVAIR DISKUS [Concomitant]
     Indication: CHRONIC OBSTRUCTIVE PULMONARY DISEASE

REACTIONS (9)
  - Rib fracture [Unknown]
  - Wrist fracture [Unknown]
  - Balance disorder [Unknown]
  - Fall [Unknown]
  - Head injury [Unknown]
  - Skeletal injury [Unknown]
  - Musculoskeletal chest pain [Unknown]
  - Joint injury [Unknown]
  - Gait disturbance [Unknown]
